FAERS Safety Report 4957860-5 (Version None)
Quarter: 2006Q1

REPORT INFORMATION
  Report Type: 
  Country: None (occurrence: None)
  Receive Date: 20060330
  Receipt Date: 20060320
  Transmission Date: 20060701
  Serious: Yes (Hospitalization)
  Sender: FDA-Public Use
  Company Number: 2006UW04733

PATIENT
  Age: 72 Year
  Sex: Female
  Weight: 78.5 kg

DRUGS (2)
  1. TOPROL-XL [Suspect]
     Indication: HYPERTENSION
     Route: 048
  2. ACCUPRIL [Concomitant]

REACTIONS (3)
  - INFECTION [None]
  - LOSS OF CONSCIOUSNESS [None]
  - PNEUMONIA [None]
